FAERS Safety Report 6640259-3 (Version None)
Quarter: 2010Q1

REPORT INFORMATION
  Report Type: 
  Country: None (occurrence: None)
  Receive Date: 20100301
  Receipt Date: 20090526
  Transmission Date: 20100710
  Serious: Yes (Hospitalization)
  Sender: FDA-Public Use
  Company Number: 196196USA

PATIENT
  Sex: Female

DRUGS (1)
  1. METOPROLOL TARTRATE [Suspect]
     Dosage: 50 MG, ORAL
     Route: 048

REACTIONS (2)
  - ARRHYTHMIA [None]
  - DRUG INEFFECTIVE [None]
